FAERS Safety Report 10017068 (Version 5)
Quarter: 2014Q2

REPORT INFORMATION
  Report Type: Spontaneous
  Country: US (occurrence: US)
  Receive Date: 20140318
  Receipt Date: 20140520
  Transmission Date: 20141212
  Serious: Yes (Other)
  Sender: FDA-Public Use
  Company Number: US-BEH-2013037490

PATIENT
  Age: 67 Year
  Sex: Female
  Weight: 56 kg

DRUGS (20)
  1. HIZENTRA [Suspect]
     Indication: IMMUNODEFICIENCY COMMON VARIABLE
     Dosage: APPROX. OVER 1.5 HOURS
     Route: 058
     Dates: start: 20130809, end: 20130809
  2. HIZENTRA [Suspect]
     Route: 058
  3. HIZENTRA [Suspect]
     Dosage: 2 GM 10 ML VIAL; 1-4 SITES OVER 1-2 HOURS
     Route: 058
  4. HIZENTRA [Suspect]
     Dosage: 4 GM 20 ML VIAL; 1-4 SITES OVER 1-2 HIOURS
     Route: 058
  5. HIZENTRA [Suspect]
     Dosage: 1-4 SITES OVER 8 HOURS
     Route: 058
  6. HIZENTRA [Suspect]
     Dosage: 1-4 SITES OVER 8 HOURS
     Route: 058
  7. ACETAMINOPHEN [Concomitant]
  8. DIPHENHYDRAMINE [Concomitant]
     Indication: PREMEDICATION
  9. EPI-PEN [Concomitant]
     Indication: PREMEDICATION
  10. LMX [Concomitant]
     Indication: PREMEDICATION
  11. SINGULAIR [Concomitant]
  12. SYNTHROID [Concomitant]
  13. FERROUS SULFATE [Concomitant]
  14. KLOR CON [Concomitant]
  15. ESTRADIOL [Concomitant]
  16. VERAPAMIL [Concomitant]
  17. BIOTIN [Concomitant]
  18. VITAMIN D [Concomitant]
  19. DAILY MULTIVITAMINS [Concomitant]
  20. TENEX [Concomitant]

REACTIONS (24)
  - Oedema [Unknown]
  - Musculoskeletal stiffness [Unknown]
  - Headache [Unknown]
  - Nausea [Unknown]
  - Vomiting [Unknown]
  - Injection site pain [Unknown]
  - Injection site erythema [Unknown]
  - Infusion site swelling [Unknown]
  - Infusion site mass [Unknown]
  - Back pain [Unknown]
  - Infusion site erythema [Unknown]
  - Infusion site mass [Unknown]
  - Infusion site pain [Unknown]
  - Infusion site warmth [Unknown]
  - Oedema [Recovering/Resolving]
  - Rash [Unknown]
  - Injection site erythema [Not Recovered/Not Resolved]
  - Dyspnoea [Unknown]
  - Injection site pain [Not Recovered/Not Resolved]
  - Swelling [Unknown]
  - Injection site pain [Unknown]
  - Injection site swelling [Unknown]
  - Injection site erythema [Unknown]
  - Injection site warmth [Unknown]
